FAERS Safety Report 23246693 (Version 2)
Quarter: 2024Q1

REPORT INFORMATION
  Report Type: Report from Study
  Country: CA (occurrence: CA)
  Receive Date: 20231130
  Receipt Date: 20240103
  Transmission Date: 20240410
  Serious: Yes (Other)
  Sender: FDA-Public Use
  Company Number: CA-TAKEDA-2023TUS115045

PATIENT
  Age: 62 Year
  Sex: Female

DRUGS (6)
  1. VEDOLIZUMAB [Suspect]
     Active Substance: VEDOLIZUMAB
     Indication: Colitis ulcerative
     Dosage: 300 MILLIGRAM
     Route: 042
     Dates: start: 20180604
  2. VEDOLIZUMAB [Suspect]
     Active Substance: VEDOLIZUMAB
     Dosage: 300 MILLIGRAM, Q4WEEKS
     Route: 042
     Dates: start: 20201008
  3. ASACOL [Concomitant]
     Active Substance: MESALAMINE
     Dosage: 800 MILLIGRAM, BID
  4. FUROSEMIDE [Concomitant]
     Active Substance: FUROSEMIDE
     Indication: Diuretic therapy
     Dosage: 20 MILLIGRAM, QD
  5. SPIRONOLACTONE [Concomitant]
     Active Substance: SPIRONOLACTONE
     Dosage: 50 MILLIGRAM, BID
  6. PREDNISONE [Concomitant]
     Active Substance: PREDNISONE
     Dosage: UNK

REACTIONS (5)
  - Cataract [Recovered/Resolved]
  - Fall [Unknown]
  - Skin abrasion [Unknown]
  - Haemorrhage [Unknown]
  - Off label use [Unknown]

NARRATIVE: CASE EVENT DATE: 20201008
